FAERS Safety Report 7118100-4 (Version None)
Quarter: 2010Q4

REPORT INFORMATION
  Report Type: 
  Country: None (occurrence: None)
  Receive Date: 20101123
  Receipt Date: 20101119
  Transmission Date: 20110411
  Serious: Yes (Other)
  Sender: FDA-Public Use
  Company Number: US-PFIZER INC-2010153612

PATIENT
  Sex: Female
  Weight: 81.179 kg

DRUGS (3)
  1. CELEBREX [Suspect]
     Indication: ARTHRITIS
     Dosage: 100 MG, 1X/DAY
     Route: 048
     Dates: start: 20100501
  2. PROMETHAZINE [Concomitant]
     Indication: ABDOMINAL DISCOMFORT
     Dosage: UNK
  3. ZANTAC [Concomitant]
     Indication: ABDOMINAL DISCOMFORT
     Dosage: 150 MG, 1X/DAY

REACTIONS (3)
  - DIARRHOEA [None]
  - GASTRIC HAEMORRHAGE [None]
  - GASTRIC PERFORATION [None]
